FAERS Safety Report 20749317 (Version 1)
Quarter: 2022Q2

REPORT INFORMATION
  Report Type: Spontaneous
  Country: US (occurrence: None)
  Receive Date: 20220425
  Receipt Date: 20220425
  Transmission Date: 20220720
  Serious: Yes (Hospitalization)
  Sender: FDA-Public Use
  Company Number: None

PATIENT
  Age: 66 Year
  Sex: Female
  Weight: 49.44 kg

DRUGS (13)
  1. PROMACTA [Suspect]
     Active Substance: ELTROMBOPAG OLAMINE
     Indication: Anaemia
     Dosage: FREQUENCY : DAILY;?
     Route: 048
     Dates: start: 20220329
  2. PROMACTA [Suspect]
     Active Substance: ELTROMBOPAG OLAMINE
     Indication: Bone marrow failure
  3. ALBUTEROL [Concomitant]
     Active Substance: ALBUTEROL
  4. CALCIUM\CHOLECALCIFEROL [Concomitant]
     Active Substance: CALCIUM\CHOLECALCIFEROL
  5. FLUTICASONE-SALMETEROL [Concomitant]
  6. LEVOFLOXACIN [Concomitant]
     Active Substance: LEVOFLOXACIN
  7. ONDANSETRON [Concomitant]
     Active Substance: ONDANSETRON
  8. PANTOPRAZOLE [Concomitant]
     Active Substance: PANTOPRAZOLE
  9. POTASSIUM CHLORIDE [Concomitant]
     Active Substance: POTASSIUM CHLORIDE
  10. PROMACTA [Concomitant]
     Active Substance: ELTROMBOPAG OLAMINE
  11. VITAMIN B12 [Concomitant]
     Active Substance: CYANOCOBALAMIN
  12. VITAMIN D2 [Concomitant]
     Active Substance: ERGOCALCIFEROL
  13. ZOLPIDEM [Concomitant]
     Active Substance: ZOLPIDEM TARTRATE

REACTIONS (1)
  - Red blood cell count decreased [None]
